FAERS Safety Report 7634965-1 (Version None)
Quarter: 2011Q3

REPORT INFORMATION
  Report Type: 
  Country: None (occurrence: None)
  Receive Date: 20110726
  Receipt Date: 20110718
  Transmission Date: 20111222
  Serious: Yes (Hospitalization, Other)
  Sender: FDA-Public Use
  Company Number: US-BAYER-201035443NA

PATIENT
  Age: 20 Year
  Sex: Female
  Weight: 86 kg

DRUGS (4)
  1. PHENERGAN HCL [Concomitant]
     Dosage: UNK
     Dates: start: 20070905
  2. YASMIN [Suspect]
     Indication: CONTRACEPTION
     Dosage: UNK UNK, UNK
     Route: 048
     Dates: start: 20060101, end: 20070906
  3. YAZ [Suspect]
     Indication: CONTRACEPTION
     Dosage: UNK UNK, UNK
     Route: 048
     Dates: start: 20070101
  4. ANTIBIOTICS [Concomitant]
     Dosage: UNK
     Route: 042
     Dates: start: 20070905

REACTIONS (3)
  - CHOLELITHIASIS [None]
  - NEPHROCALCINOSIS [None]
  - NEPHROLITHIASIS [None]
